FAERS Safety Report 13858359 (Version 3)
Quarter: 2018Q3

REPORT INFORMATION
  Report Type: Spontaneous
  Country: ES (occurrence: ES)
  Receive Date: 20170811
  Receipt Date: 20180824
  Transmission Date: 20181010
  Serious: Yes (Hospitalization)
  Sender: FDA-Public Use
  Company Number: ES-PFIZER INC-2017330267

PATIENT
  Age: 72 Year
  Sex: Male

DRUGS (6)
  1. CLARITHROMYCIN. [Interacting]
     Active Substance: CLARITHROMYCIN
     Indication: RESPIRATORY TRACT INFECTION
     Dosage: 250 MG, 2X/DAY (/12HR)
  2. ASPIRIN /00002701/ [Concomitant]
     Active Substance: ASPIRIN
     Indication: ANGINA UNSTABLE
     Dosage: 300 MG,1X/DAY (/DAY )
  3. ATORVASTATIN CALCIUM. [Suspect]
     Active Substance: ATORVASTATIN CALCIUM
     Indication: ANGINA UNSTABLE
     Dosage: 40 MG, DAILY, (40 MG/24 HRS)
  4. ENALAPRIL [Concomitant]
     Active Substance: ENALAPRIL
     Indication: ANGINA UNSTABLE
     Dosage: 10 MG, 2X/DAY (/12HR)
  5. BISOPROLOL [Concomitant]
     Active Substance: BISOPROLOL
     Indication: ANGINA UNSTABLE
     Dosage: 5 MG,1X/DAY (/24HRS)
  6. TICAGRELOR. [Interacting]
     Active Substance: TICAGRELOR
     Indication: ANGINA UNSTABLE
     Dosage: 90 MG, 2X/DAY, (90 MG/12 HR)

REACTIONS (2)
  - Rhabdomyolysis [Recovering/Resolving]
  - Drug interaction [Unknown]
